FAERS Safety Report 11319160 (Version 1)
Quarter: 2015Q3

REPORT INFORMATION
  Report Type: Spontaneous
  Country: US (occurrence: None)
  Receive Date: 20150727
  Receipt Date: 20150727
  Transmission Date: 20151125
  Serious: Yes (Disabling)
  Sender: FDA-Public Use
  Company Number: None

PATIENT
  Age: 33 Year
  Sex: Female
  Weight: 65.32 kg

DRUGS (6)
  1. TRETINOIN. [Concomitant]
     Active Substance: TRETINOIN
  2. SPIRONOLACTONE. [Concomitant]
     Active Substance: SPIRONOLACTONE
  3. CALCIUM [Concomitant]
     Active Substance: CALCIUM
  4. IBUPROFEN. [Concomitant]
     Active Substance: IBUPROFEN
  5. MULTIVITAMIN [Concomitant]
     Active Substance: VITAMINS
  6. NEXPLANON [Suspect]
     Active Substance: ETONOGESTREL
     Indication: CONTRACEPTION
     Dosage: 1 IMPLANT ONCE EVERY 3 YEARS GIVEN INT/UNDER THE SKIN
     Dates: start: 20150608

REACTIONS (1)
  - Breast cyst [None]

NARRATIVE: CASE EVENT DATE: 20150719
